FAERS Safety Report 21308461 (Version 1)
Quarter: 2022Q3

REPORT INFORMATION
  Report Type: Spontaneous
  Country: CN (occurrence: CN)
  Receive Date: 20220908
  Receipt Date: 20220908
  Transmission Date: 20221027
  Serious: Yes (Other)
  Sender: FDA-Public Use
  Company Number: CN-Merck Healthcare KGaA-9348198

PATIENT
  Age: 47 Year
  Sex: Male
  Weight: 63 kg

DRUGS (4)
  1. ERBITUX [Suspect]
     Active Substance: CETUXIMAB
     Indication: Tongue neoplasm malignant stage unspecified
     Dosage: 0.4 G, OTHER, ONE
     Route: 041
     Dates: start: 20220720, end: 20220720
  2. PACLITAXEL [Suspect]
     Active Substance: PACLITAXEL
     Indication: Tongue neoplasm malignant stage unspecified
     Dosage: 236 MG, OTHER, ONCE
     Route: 041
     Dates: start: 20220726, end: 20220726
  3. CISPLATIN [Suspect]
     Active Substance: CISPLATIN
     Indication: Tongue neoplasm malignant stage unspecified
     Dosage: 30 MG, OTHER, ONCE
     Route: 041
     Dates: start: 20220720, end: 20220720
  4. SODIUM CHLORIDE [Concomitant]
     Active Substance: SODIUM CHLORIDE
     Indication: Tongue neoplasm malignant stage unspecified
     Dosage: 500 ML, OTHER, ONCE
     Route: 041
     Dates: start: 20220720, end: 20220720

REACTIONS (1)
  - White blood cell count decreased [Recovering/Resolving]

NARRATIVE: CASE EVENT DATE: 20220803
